FAERS Safety Report 16252752 (Version 2)
Quarter: 2019Q4

REPORT INFORMATION
  Report Type: Spontaneous
  Country: JP (occurrence: JP)
  Receive Date: 20190429
  Receipt Date: 20191223
  Transmission Date: 20200122
  Serious: Yes (Disabling, Other)
  Sender: FDA-Public Use
  Company Number: JP-JNJFOC-20190329577

PATIENT
  Age: 74 Year
  Sex: Male

DRUGS (9)
  1. RIVAROXABAN [Suspect]
     Active Substance: RIVAROXABAN
     Indication: ATRIAL FIBRILLATION
     Dosage: UNK
     Route: 048
     Dates: start: 20161214
  2. CALONAL [Suspect]
     Active Substance: ACETAMINOPHEN
     Indication: PRODUCT USED FOR UNKNOWN INDICATION
     Route: 065
     Dates: start: 20190218
  3. FEBURIC [Concomitant]
     Active Substance: FEBUXOSTAT
     Dosage: DAILY DOSE 20 MG
  4. RIVAROXABAN [Suspect]
     Active Substance: RIVAROXABAN
     Dosage: 15 MG, QD
     Route: 048
     Dates: start: 20190319
  5. MICARDIS [Concomitant]
     Active Substance: TELMISARTAN
     Dosage: DAILY DOSE 20 MG
  6. VITAMINS NOS [Concomitant]
     Active Substance: VITAMINS
     Dosage: DAILY DOSE 5  G
     Dates: start: 20190218
  7. RIVAROXABAN [Suspect]
     Active Substance: RIVAROXABAN
     Route: 048
     Dates: end: 20190305
  8. AMLODIPINE [Concomitant]
     Active Substance: AMLODIPINE BESYLATE
     Dosage: DAILY DOSE 5 MG
  9. LOQOA [Concomitant]
     Dosage: UNK
     Dates: start: 20190218

REACTIONS (4)
  - Melaena [Recovering/Resolving]
  - Haematochezia [Unknown]
  - International normalised ratio increased [Unknown]
  - Adverse event [Recovering/Resolving]

NARRATIVE: CASE EVENT DATE: 20190220
